FAERS Safety Report 9215761 (Version 2)
Quarter: 2013Q2

REPORT INFORMATION
  Report Type: Spontaneous
  Country: US (occurrence: None)
  Receive Date: 20130405
  Receipt Date: 20130423
  Transmission Date: 20140414
  Serious: Yes (Death)
  Sender: FDA-Public Use
  Company Number: 2013-1406

PATIENT
  Age: 58 Year
  Sex: Male

DRUGS (5)
  1. SOMATULINE [Suspect]
     Indication: ACROMEGALY
     Dosage: 90 MG (90 MG, 1 IN 28 D), UNKNOWN
     Dates: start: 20090316, end: 201111
  2. LIPID LOWERING (ALL OTHER THERAPEUTIC PRODUCTS) [Concomitant]
  3. AMBIEN (ZOLPIDEM TARTRATE) [Concomitant]
  4. ZYRTEC (CETIRIZINE HYDROCHLORIDE) [Concomitant]
  5. VALIUM (DIAZEPAM) [Concomitant]

REACTIONS (1)
  - Death [None]
